FAERS Safety Report 17088541 (Version 1)
Quarter: 2019Q4

REPORT INFORMATION
  Report Type: Spontaneous
  Country: PL (occurrence: PL)
  Receive Date: 20191128
  Receipt Date: 20191128
  Transmission Date: 20200122
  Serious: Yes (Other)
  Sender: FDA-Public Use
  Company Number: NVSC2019PL048258

PATIENT
  Age: 80 Year
  Sex: Male

DRUGS (2)
  1. PACLITAXEL. [Suspect]
     Active Substance: PACLITAXEL
     Indication: SKIN CANCER
     Dosage: 50 MG/M2, QW (CYCLIC)
     Route: 065
  2. CARBOPLATIN. [Suspect]
     Active Substance: CARBOPLATIN
     Indication: SKIN CANCER
     Dosage: UNK (CYCLIC)
     Route: 065

REACTIONS (3)
  - Skin toxicity [Unknown]
  - Neutropenia [Unknown]
  - Product use in unapproved indication [Unknown]
